FAERS Safety Report 9439922 (Version 16)
Quarter: 2015Q4

REPORT INFORMATION
  Report Type: Report from Study
  Country: CA (occurrence: CA)
  Receive Date: 20130805
  Receipt Date: 20151130
  Transmission Date: 20160305
  Serious: Yes (Hospitalization, Other)
  Sender: FDA-Public Use
  Company Number: CA-ROCHE-CID000000002213709

PATIENT
  Age: 68 Year
  Sex: Male
  Weight: 104.5 kg

DRUGS (11)
  1. XELODA [Suspect]
     Active Substance: CAPECITABINE
     Indication: COLORECTAL CANCER METASTATIC
     Route: 048
     Dates: start: 20110516
  2. 5-FU [Suspect]
     Active Substance: FLUOROURACIL
     Indication: PRODUCT USED FOR UNKNOWN INDICATION
     Route: 065
  3. FOLINIC ACID [Suspect]
     Active Substance: LEUCOVORIN
     Indication: COLORECTAL CANCER METASTATIC
     Route: 065
     Dates: start: 20130401
  4. AVASTIN [Suspect]
     Active Substance: BEVACIZUMAB
     Indication: COLORECTAL CANCER METASTATIC
     Route: 042
     Dates: start: 20110516, end: 20150121
  5. IRINOTECAN [Suspect]
     Active Substance: IRINOTECAN
     Indication: COLORECTAL CANCER METASTATIC
     Route: 065
     Dates: start: 201112, end: 201209
  6. AVASTIN [Suspect]
     Active Substance: BEVACIZUMAB
     Dosage: MOST RECENT DOSE ON 05/NOV/2013
     Route: 042
     Dates: start: 20130813, end: 20150429
  7. IRINOTECAN [Suspect]
     Active Substance: IRINOTECAN
     Route: 065
     Dates: start: 20150203
  8. INDOMETHACIN. [Concomitant]
     Active Substance: INDOMETHACIN
     Indication: GOUT
     Dosage: ONE WEEK
     Route: 065
  9. OMEGA 3 [Concomitant]
     Active Substance: OMEGA-3 FATTY ACIDS
     Dosage: SUPPLEMENT
     Route: 065
  10. OXALIPLATIN. [Suspect]
     Active Substance: OXALIPLATIN
     Indication: COLORECTAL CANCER METASTATIC
     Route: 065
     Dates: start: 20130401
  11. TEMAZEPAM. [Suspect]
     Active Substance: TEMAZEPAM
     Indication: SLEEP DISORDER
     Route: 065
     Dates: start: 201104

REACTIONS (19)
  - Immunosuppression [Not Recovered/Not Resolved]
  - Insomnia [Not Recovered/Not Resolved]
  - Sepsis [Recovered/Resolved]
  - Skin fragility [Not Recovered/Not Resolved]
  - Diarrhoea [Recovered/Resolved]
  - Headache [Not Recovered/Not Resolved]
  - Urinary retention [Not Recovered/Not Resolved]
  - Weight decreased [Recovering/Resolving]
  - Fingerprint loss [Unknown]
  - Dry skin [Not Recovered/Not Resolved]
  - Metastases to lung [Not Recovered/Not Resolved]
  - Neutrophil count decreased [Unknown]
  - Bacteraemia [Recovering/Resolving]
  - Prostatomegaly [Not Recovered/Not Resolved]
  - Dysuria [Not Recovered/Not Resolved]
  - Stomatitis [Unknown]
  - Urinary tract infection [Recovering/Resolving]
  - Palmar-plantar erythrodysaesthesia syndrome [Not Recovered/Not Resolved]
  - Somnolence [Not Recovered/Not Resolved]

NARRATIVE: CASE EVENT DATE: 201210
